FAERS Safety Report 7713104-2 (Version None)
Quarter: 2011Q3

REPORT INFORMATION
  Report Type: 
  Country: None (occurrence: None)
  Receive Date: 20110826
  Receipt Date: 20110817
  Transmission Date: 20111222
  Serious: Yes (Disabling, Other)
  Sender: FDA-Public Use
  Company Number: PHHY2010US44448

PATIENT
  Sex: Female
  Weight: 74 kg

DRUGS (6)
  1. VITAMIN D [Concomitant]
     Dosage: 1000 IU
     Route: 048
  2. ASPIRIN [Concomitant]
     Dosage: 81 MG, BID
     Route: 048
  3. CALCIUM CARBONATE [Concomitant]
     Dosage: 1000 MG, BID
     Route: 048
  4. VITAMIN D [Concomitant]
     Dosage: UNK UKN, UNK
     Route: 048
  5. M.V.I. [Concomitant]
     Dosage: UNK UKN, UNK
     Route: 048
  6. RECLAST [Suspect]
     Indication: OSTEOPOROSIS
     Dosage: 5 MG, UNK
     Route: 042
     Dates: start: 20100622

REACTIONS (14)
  - MYALGIA [None]
  - THROAT TIGHTNESS [None]
  - DYSPNOEA [None]
  - CHEST PAIN [None]
  - PAIN OF SKIN [None]
  - ARTHRALGIA [None]
  - SKIN DISCOMFORT [None]
  - CHILLS [None]
  - INFLUENZA LIKE ILLNESS [None]
  - BREAST CALCIFICATIONS [None]
  - PYREXIA [None]
  - RASH PRURITIC [None]
  - OROPHARYNGEAL PAIN [None]
  - FATIGUE [None]
